FAERS Safety Report 6469763-8 (Version None)
Quarter: 2009Q4

REPORT INFORMATION
  Report Type: 
  Country: None (occurrence: None)
  Receive Date: 20091203
  Receipt Date: 20080724
  Transmission Date: 20100525
  Serious: Yes (Death)
  Sender: FDA-Public Use
  Company Number: GB-LLY01-GB200705002732

PATIENT
  Age: 34 Year
  Sex: Male
  Weight: 65 kg

DRUGS (6)
  1. ZYPREXA [Suspect]
     Indication: PERSONALITY DISORDER
     Dosage: UNK, 2/D
     Route: 048
     Dates: start: 19990331
  2. CITALOPRAM HYDROBROMIDE [Concomitant]
     Indication: MENTAL DISORDER
     Dosage: 40 MG, DAILY (1/D)
     Route: 048
     Dates: start: 20040828
  3. MUCOGEL [Concomitant]
     Indication: GASTRITIS
     Dosage: 10 ML, AS NEEDED
     Route: 048
     Dates: start: 20010801
  4. ORLEPT [Concomitant]
     Indication: MENTAL DISORDER
     Dosage: 460 MG, UNK
     Route: 048
     Dates: start: 20020204
  5. SULPIRIDE [Concomitant]
     Indication: MENTAL DISORDER
     Dosage: 200 MG, 2/D
     Route: 048
     Dates: start: 19980731
  6. OMEPRAZOLE [Concomitant]
     Dosage: 10 MG, UNK

REACTIONS (4)
  - DIABETIC KETOACIDOSIS [None]
  - DIABETIC NEPHROPATHY [None]
  - PULMONARY CONGESTION [None]
  - PULMONARY OEDEMA [None]
